FAERS Safety Report 5448100-1 (Version None)
Quarter: 2007Q3

REPORT INFORMATION
  Report Type: 
  Country: None (occurrence: None)
  Receive Date: 20070803
  Receipt Date: 20070628
  Transmission Date: 20080115
  Serious: Yes (Disabling)
  Sender: FDA-Public Use
  Company Number: 200615908BWH

PATIENT
  Age: 52 Year
  Sex: Female

DRUGS (8)
  1. NEXAVAR [Suspect]
     Indication: METASTASES TO LIVER
     Dosage: 400 MG, BID, ORAL
     Route: 048
     Dates: start: 20060813
  2. NEXAVAR [Suspect]
     Indication: METASTASES TO LUNG
     Dosage: 400 MG, BID, ORAL
     Route: 048
     Dates: start: 20060813
  3. NEXAVAR [Suspect]
     Indication: METASTATIC RENAL CELL CARCINOMA
     Dosage: 400 MG, BID, ORAL
     Route: 048
     Dates: start: 20060813
  4. INSULIN PUMP NOS [Concomitant]
  5. LISINOPRIL [Concomitant]
  6. ASPIRIN [Concomitant]
  7. PAXIL [Concomitant]
  8. ZOFRAN [Concomitant]

REACTIONS (12)
  - ABASIA [None]
  - ABSCESS LIMB [None]
  - ANOREXIA [None]
  - BLISTER [None]
  - BLOOD GLUCOSE DECREASED [None]
  - HYPERKERATOSIS [None]
  - NAUSEA [None]
  - PALMAR-PLANTAR ERYTHRODYSAESTHESIA SYNDROME [None]
  - RASH GENERALISED [None]
  - SKIN LESION [None]
  - STOMATITIS [None]
  - WOUND [None]
